FAERS Safety Report 5912483-6 (Version None)
Quarter: 2008Q4

REPORT INFORMATION
  Report Type: 
  Country: None (occurrence: None)
  Receive Date: 20081008
  Receipt Date: 20080930
  Transmission Date: 20090506
  Serious: Yes (Hospitalization)
  Sender: FDA-Public Use
  Company Number: US-AMGEN-US305272

PATIENT
  Sex: Male
  Weight: 77 kg

DRUGS (17)
  1. PANITUMUMAB [Suspect]
     Indication: COLORECTAL CANCER
     Route: 042
     Dates: start: 20080722
  2. IRINOTECAN HYDROCHLORIDE [Concomitant]
     Route: 042
     Dates: start: 20080722
  3. FLUOROURACIL [Concomitant]
     Route: 040
     Dates: start: 20080722
  4. FLUOROURACIL [Concomitant]
     Route: 042
     Dates: start: 20080722
  5. GLUCOPHAGE [Concomitant]
  6. NEXIUM [Concomitant]
  7. POTASSIUM CHLORIDE [Concomitant]
     Route: 048
  8. LISINOPRIL [Concomitant]
  9. LASIX [Concomitant]
  10. ZOCOR [Concomitant]
  11. TOPROL-XL [Concomitant]
  12. IRON SULFATETHIAMIN COMPOUND TAB [Concomitant]
  13. ARICEPT [Concomitant]
  14. CLONAZEPAM [Concomitant]
  15. MAGNESIUM SULFATE [Concomitant]
  16. CARDURA [Concomitant]
  17. LEUCOVORIN CALCIUM [Concomitant]
     Route: 042
     Dates: start: 20080722

REACTIONS (2)
  - CLOSTRIDIAL INFECTION [None]
  - COLITIS [None]
